FAERS Safety Report 23221087 (Version 2)
Quarter: 2024Q1

REPORT INFORMATION
  Report Type: Report from Study
  Country: US (occurrence: US)
  Receive Date: 20231123
  Receipt Date: 20240205
  Transmission Date: 20240409
  Serious: Yes (Other)
  Sender: FDA-Public Use
  Company Number: US-UCBSA-2023054663

PATIENT
  Age: 21 Year
  Sex: Female

DRUGS (1)
  1. FINTEPLA [Suspect]
     Active Substance: FENFLURAMINE
     Indication: Lennox-Gastaut syndrome
     Dosage: 4 MILLILITER, 2X/DAY (BID)
     Dates: start: 20230901, end: 20231113

REACTIONS (3)
  - Cardiac dysfunction [Recovered/Resolved]
  - Heart rate irregular [Recovered/Resolved]
  - Drug ineffective [Unknown]

NARRATIVE: CASE EVENT DATE: 20231113
